FAERS Safety Report 5983573-7 (Version None)
Quarter: 2008Q4

REPORT INFORMATION
  Report Type: 
  Country: None (occurrence: None)
  Receive Date: 20081208
  Receipt Date: 20081126
  Transmission Date: 20090506
  Serious: Yes (Other)
  Sender: FDA-Public Use
  Company Number: US-ROCHE-591351

PATIENT
  Sex: Male
  Weight: 62.1 kg

DRUGS (3)
  1. CAPECITABINE [Suspect]
     Indication: BILIARY CANCER METASTATIC
     Dosage: FREQUENCY: FOR 14 DAYS, REPEAT EVERY 21 DAYS
     Route: 048
     Dates: start: 20080731, end: 20081001
  2. CHEMOTHERAPY [Concomitant]
     Route: 042
  3. GEMZAR [Concomitant]
     Indication: BILIARY CANCER METASTATIC
     Dosage: FORM: IVPB, DOSING AMOUNT: 1330 MG, 800 MG/M2, FREQUENCY: DAY 1+8 EVERY 21 DAYS
     Route: 042
     Dates: start: 20080731, end: 20081001

REACTIONS (1)
  - DISEASE PROGRESSION [None]
